FAERS Safety Report 6219221-0 (Version None)
Quarter: 2009Q2

REPORT INFORMATION
  Report Type: 
  Country: None (occurrence: None)
  Receive Date: 20090604
  Receipt Date: 20090604
  Transmission Date: 20091009
  Serious: Yes (Other)
  Sender: FDA-Public Use
  Company Number: None

PATIENT
  Sex: Female
  Weight: 113.3993 kg

DRUGS (1)
  1. CYMBALTA [Suspect]
     Indication: DEPRESSION
     Dosage: 60 MG 1/PER DAY PO
     Route: 048
     Dates: start: 20080201, end: 20090521

REACTIONS (7)
  - CONFUSIONAL STATE [None]
  - DIZZINESS [None]
  - EMOTIONAL DISORDER [None]
  - HEADACHE [None]
  - IMPATIENCE [None]
  - VISION BLURRED [None]
  - WITHDRAWAL SYNDROME [None]
